FAERS Safety Report 9471491 (Version 1)
Quarter: 2013Q3

REPORT INFORMATION
  Report Type: Spontaneous
  Country: US (occurrence: US)
  Receive Date: 20130822
  Receipt Date: 20130822
  Transmission Date: 20140515
  Serious: No
  Sender: FDA-Public Use
  Company Number: US-PFIZER INC-2013239063

PATIENT
  Sex: Female

DRUGS (1)
  1. EXEMESTANE [Suspect]
     Dosage: 25 MG, 1X/DAY
     Dates: start: 20130808

REACTIONS (5)
  - Joint swelling [Unknown]
  - Oedema peripheral [Unknown]
  - Bone swelling [Unknown]
  - Pain in extremity [Unknown]
  - Weight increased [Unknown]
